FAERS Safety Report 4509340-9 (Version None)
Quarter: 2004Q4

REPORT INFORMATION
  Report Type: 
  Country: None (occurrence: None)
  Receive Date: 20041025
  Receipt Date: 20040806
  Transmission Date: 20050328
  Serious: Yes (Other)
  Sender: FDA-Public Use
  Company Number: US-JNJFOC-20040802337

PATIENT
  Age: 78 Year
  Sex: Female

DRUGS (8)
  1. INFLIXIMAB (INFLIXIMAB, RECOMBINANT) LYOPHILIZED POWDER [Suspect]
     Indication: RHEUMATOID ARTHRITIS
     Dosage: INTRAVENOUS
     Route: 042
     Dates: start: 20000727
  2. METHOTREXATE [Concomitant]
  3. PREDNISONE [Concomitant]
  4. SYNTHROID [Concomitant]
  5. FOSAMAX [Concomitant]
  6. FOLIC ACID [Concomitant]
  7. CALCIUM + D (CALCIUM) [Concomitant]
  8. MULTIVITAMIN (MULTIVITAMINS) [Concomitant]

REACTIONS (2)
  - PSEUDOMONAS INFECTION [None]
  - SKIN ULCER [None]
